FAERS Safety Report 15645742 (Version 1)
Quarter: 2018Q4

REPORT INFORMATION
  Report Type: Spontaneous
  Country: GB (occurrence: GB)
  Receive Date: 20181121
  Receipt Date: 20181121
  Transmission Date: 20190205
  Serious: Yes (Other)
  Sender: FDA-Public Use
  Company Number: PHHY2018GB161759

PATIENT
  Age: 39 Year
  Sex: Female

DRUGS (5)
  1. CLINDAMYCIN. [Suspect]
     Active Substance: CLINDAMYCIN
     Indication: CEREBRAL TOXOPLASMOSIS
     Dosage: 600 MG, QDS
     Route: 065
  2. EFAVIRENZ. [Suspect]
     Active Substance: EFAVIRENZ
     Indication: HIV INFECTION
     Route: 065
  3. DAPSONE. [Suspect]
     Active Substance: DAPSONE
     Indication: TOXOPLASMOSIS PROPHYLAXIS
     Dosage: 100 MG, QD
     Route: 065
  4. ABACAVIR+LAMIVUDINE [Suspect]
     Active Substance: ABACAVIR SULFATE\LAMIVUDINE
     Indication: HIV INFECTION
     Route: 065
  5. SULFADIAZINE. [Suspect]
     Active Substance: SULFADIAZINE
     Indication: CEREBRAL TOXOPLASMOSIS
     Dosage: 2 G, QDS
     Route: 065

REACTIONS (3)
  - Product use in unapproved indication [Unknown]
  - Maternal exposure during pregnancy [Unknown]
  - Foetal death [Unknown]
